FAERS Safety Report 9986832 (Version 1)
Quarter: 2014Q1

REPORT INFORMATION
  Report Type: Report from Study
  Country: US (occurrence: US)
  Receive Date: 20140307
  Receipt Date: 20140307
  Transmission Date: 20141002
  Serious: No
  Sender: FDA-Public Use
  Company Number: US-ABBVIE-13P-163-1081652-00

PATIENT
  Age: 52 Year
  Sex: Female

DRUGS (9)
  1. HUMIRA [Suspect]
     Indication: RHEUMATOID ARTHRITIS
     Dates: start: 201211
  2. METHOTREXATE [Concomitant]
     Indication: RHEUMATOID ARTHRITIS
     Dosage: WEEKLY
  3. FOLIC ACID [Concomitant]
     Indication: RHEUMATOID ARTHRITIS
  4. TRAZODONE [Concomitant]
     Indication: INSOMNIA
     Dosage: AT BEDTIME
  5. AMLODIPINE [Concomitant]
     Indication: HYPERTENSION
  6. ZYRTEC [Concomitant]
     Indication: HYPERSENSITIVITY
  7. SAVELLA [Concomitant]
     Indication: FIBROMYALGIA
  8. D3 [Concomitant]
     Indication: VITAMIN SUPPLEMENTATION
  9. PENICILLIN [Interacting]
     Indication: PRODUCT USED FOR UNKNOWN INDICATION

REACTIONS (2)
  - Hyperaesthesia [Not Recovered/Not Resolved]
  - Contusion [Not Recovered/Not Resolved]
